FAERS Safety Report 7890063-3 (Version None)
Quarter: 2011Q4

REPORT INFORMATION
  Report Type: 
  Country: None (occurrence: None)
  Receive Date: 20111103
  Receipt Date: 20111102
  Transmission Date: 20120403
  Serious: Yes (Other)
  Sender: FDA-Public Use
  Company Number: US-ROCHE-1008906

PATIENT
  Sex: Female

DRUGS (1)
  1. ACCUTANE [Suspect]
     Indication: PRODUCT USED FOR UNKNOWN INDICATION
     Dates: start: 20000401, end: 20010701

REACTIONS (5)
  - COLITIS [None]
  - GASTRITIS [None]
  - DIVERTICULUM [None]
  - RECTAL HAEMORRHAGE [None]
  - IRRITABLE BOWEL SYNDROME [None]
